FAERS Safety Report 6610393-2 (Version None)
Quarter: 2010Q1

REPORT INFORMATION
  Report Type: 
  Country: None (occurrence: None)
  Receive Date: 20100302
  Receipt Date: 20100128
  Transmission Date: 20100710
  Serious: No
  Sender: FDA-Public Use
  Company Number: US-BAYER-201012959NA

PATIENT
  Age: 51 Year
  Sex: Female

DRUGS (4)
  1. ULTRAVIST 300 [Suspect]
     Indication: COMPUTERISED TOMOGRAM ABDOMEN
     Dosage: TOTAL DAILY DOSE: 95 ML  UNIT DOSE: 100 ML
     Route: 042
     Dates: start: 20100127, end: 20100127
  2. PROTONIX [Concomitant]
  3. SYNTHROID [Concomitant]
  4. READI-CAT [Concomitant]

REACTIONS (2)
  - SNEEZING [None]
  - URTICARIA [None]
